FAERS Safety Report 13706348 (Version 1)
Quarter: 2017Q2

REPORT INFORMATION
  Report Type: Spontaneous
  Country: KZ (occurrence: KZ)
  Receive Date: 20170630
  Receipt Date: 20170630
  Transmission Date: 20170830
  Serious: Yes (Hospitalization)
  Sender: FDA-Public Use
  Company Number: KZ-JNJFOC-20170627523

PATIENT
  Sex: Male
  Weight: 65 kg

DRUGS (1)
  1. XARELTO [Suspect]
     Active Substance: RIVAROXABAN
     Indication: PRODUCT USED FOR UNKNOWN INDICATION
     Route: 048

REACTIONS (5)
  - Swelling [Unknown]
  - Pain in extremity [Unknown]
  - Embolism venous [Unknown]
  - Movement disorder [Unknown]
  - Deep vein thrombosis [Unknown]
